FAERS Safety Report 6159722-7 (Version None)
Quarter: 2009Q2

REPORT INFORMATION
  Report Type: 
  Country: None (occurrence: None)
  Receive Date: 20090415
  Receipt Date: 20090407
  Transmission Date: 20091009
  Serious: Yes (Hospitalization)
  Sender: FDA-Public Use
  Company Number: 2009JP002011

PATIENT
  Age: 64 Year
  Sex: Male

DRUGS (1)
  1. VESICARE [Suspect]
     Indication: HYPERTONIC BLADDER
     Dosage: 2.5 MG, /D, ORAL
     Route: 048
     Dates: start: 20090209

REACTIONS (1)
  - PROSTATITIS [None]
